FAERS Safety Report 5164486-X (Version None)
Quarter: 2006Q4

REPORT INFORMATION
  Report Type: 
  Country: None (occurrence: None)
  Receive Date: 20061124
  Receipt Date: 20061109
  Transmission Date: 20070319
  Serious: Yes (Death)
  Sender: FDA-Public Use
  Company Number: 2006138303

PATIENT
  Age: 45 Year
  Sex: 0

DRUGS (3)
  1. CLONAZEPAM [Suspect]
  2. ETHANOL (ETHANOL) [Suspect]
  3. BUPROPION HCL [Suspect]

REACTIONS (2)
  - CARDIAC ARREST [None]
  - RESPIRATORY ARREST [None]
